FAERS Safety Report 25451951 (Version 3)
Quarter: 2025Q3

REPORT INFORMATION
  Report Type: Spontaneous
  Country: US (occurrence: US)
  Receive Date: 20250618
  Receipt Date: 20250922
  Transmission Date: 20251021
  Serious: Yes (Other)
  Sender: SANOFI AVENTIS
  Company Number: US-SA-2025SA169967

PATIENT
  Age: 78 Year
  Sex: Male

DRUGS (3)
  1. REZUROCK [Suspect]
     Active Substance: BELUMOSUDIL
     Indication: Myelodysplastic syndrome
     Dosage: 200 MG, QD
     Route: 048
     Dates: start: 20240409
  2. REZUROCK [Suspect]
     Active Substance: BELUMOSUDIL
     Indication: Bone marrow transplant
  3. REZUROCK [Suspect]
     Active Substance: BELUMOSUDIL
     Indication: Bone marrow disorder

REACTIONS (3)
  - Loss of consciousness [Unknown]
  - Hospice care [Unknown]
  - Product use in unapproved indication [Unknown]

NARRATIVE: CASE EVENT DATE: 20240409
